FAERS Safety Report 4677691-3 (Version None)
Quarter: 2005Q2

REPORT INFORMATION
  Report Type: 
  Country: None (occurrence: None)
  Receive Date: 20050531
  Receipt Date: 20050516
  Transmission Date: 20051028
  Serious: Yes (Disabling)
  Sender: FDA-Public Use
  Company Number: US-MERCK-0505USA01939

PATIENT
  Age: 73 Year
  Sex: Female

DRUGS (4)
  1. VYTORIN [Suspect]
     Indication: BLOOD CHOLESTEROL INCREASED
     Route: 048
     Dates: start: 20050301, end: 20050501
  2. ATACAND [Concomitant]
     Route: 065
  3. NORVASC [Concomitant]
     Route: 065
  4. HYDRODIURIL [Concomitant]
     Route: 048
     Dates: start: 20050301

REACTIONS (5)
  - DIFFICULTY IN WALKING [None]
  - FATIGUE [None]
  - LISTLESS [None]
  - MYALGIA [None]
  - PAIN IN EXTREMITY [None]
